FAERS Safety Report 7219380-7 (Version None)
Quarter: 2011Q1

REPORT INFORMATION
  Report Type: 
  Country: None (occurrence: None)
  Receive Date: 20110111
  Receipt Date: 20110105
  Transmission Date: 20110831
  Serious: No
  Sender: FDA-Public Use
  Company Number: US-PFIZER INC-2011003518

PATIENT
  Age: 55 Year
  Sex: Female

DRUGS (2)
  1. VYTORIN [Suspect]
     Dosage: UNK
  2. LIPITOR [Suspect]
     Dosage: 10 MG, UNK

REACTIONS (3)
  - PAIN IN EXTREMITY [None]
  - DIZZINESS [None]
  - ARTHRALGIA [None]
